FAERS Safety Report 4621695-3 (Version None)
Quarter: 2005Q1

REPORT INFORMATION
  Report Type: 
  Country: None (occurrence: None)
  Receive Date: 20050329
  Receipt Date: 20050314
  Transmission Date: 20050727
  Serious: Yes (Death)
  Sender: FDA-Public Use
  Company Number: GB-BOEHRINGER INGELHEIM PHARMACEUTICALS, INC.-2005-UK-00442UK

PATIENT
  Sex: Male

DRUGS (12)
  1. COMBIVENT [Suspect]
     Dosage: 2 PUFFS THREE TIMES DAILY
     Route: 055
  2. BECLOMETHASONE DIPROPIONATE [Concomitant]
     Dosage: 2 PUFFS TWICE DAILY
     Route: 055
  3. ASPIRIN [Concomitant]
     Dosage: 75 MG ONCE DAILY
  4. AMILORIDE HYDROCHLORIDE [Concomitant]
     Dosage: 5 MG ONCE DAILY
  5. DIGOXIN [Concomitant]
     Dosage: 250 MCG ONCE DAILY
  6. DIGOXIN [Concomitant]
     Dosage: 125 MCG ONCE DAILY
  7. AMLODIPINE [Concomitant]
     Dosage: 5 MG ONCE DAILY
  8. RAMIPRIL [Concomitant]
     Dosage: 10 MG ONCE DAILY
  9. DIGOXIN [Concomitant]
  10. FUROSEMIDE [Concomitant]
     Dosage: 2 TABLETS ONCE DAILY
  11. SALMETEROL [Concomitant]
     Dosage: 2 PUFFS TWICE DAILY
     Route: 055
  12. SALMETEROL WITH FLUTICASONE [Concomitant]
     Dosage: 2 PUFFS TWICE DAILY

REACTIONS (2)
  - CARDIAC FAILURE CONGESTIVE [None]
  - CHRONIC OBSTRUCTIVE PULMONARY DISEASE [None]
